FAERS Safety Report 15232095 (Version 3)
Quarter: 2019Q4

REPORT INFORMATION
  Report Type: Spontaneous
  Country: US (occurrence: US)
  Receive Date: 20180802
  Receipt Date: 20191230
  Transmission Date: 20200122
  Serious: No
  Sender: FDA-Public Use
  Company Number: US-PFIZER INC-2018309503

PATIENT
  Age: 84 Year
  Sex: Female

DRUGS (2)
  1. XELJANZ [Suspect]
     Active Substance: TOFACITINIB CITRATE
     Dosage: UNK
     Dates: start: 201910
  2. XELJANZ [Suspect]
     Active Substance: TOFACITINIB CITRATE
     Indication: RHEUMATOID ARTHRITIS
     Dosage: 5 MG, 1X/DAY
     Route: 048

REACTIONS (11)
  - Off label use [Unknown]
  - Limb discomfort [Unknown]
  - Product use issue [Unknown]
  - Tuberculin test positive [Unknown]
  - Pain in extremity [Unknown]
  - Urinary tract infection [Unknown]
  - Muscle spasms [Unknown]
  - Malaise [Unknown]
  - Musculoskeletal pain [Unknown]
  - Muscle tightness [Unknown]
  - Anaemia [Unknown]

NARRATIVE: CASE EVENT DATE: 20180728
